FAERS Safety Report 7753161-0 (Version None)
Quarter: 2011Q3

REPORT INFORMATION
  Report Type: 
  Country: None (occurrence: None)
  Receive Date: 20110915
  Receipt Date: 20110913
  Transmission Date: 20111222
  Serious: Yes (Hospitalization)
  Sender: FDA-Public Use
  Company Number: ZA-PFIZER INC-2011210208

PATIENT
  Age: 72 Year
  Sex: Female

DRUGS (3)
  1. VENTOLIN HFA [Concomitant]
     Dosage: UNK
  2. SERETIDE [Concomitant]
     Dosage: UNK
  3. VARENICLINE TARTRATE [Suspect]
     Dosage: UNK
     Route: 048

REACTIONS (6)
  - VOMITING [None]
  - NAUSEA [None]
  - DYSPNOEA [None]
  - STRESS [None]
  - MULTI-ORGAN FAILURE [None]
  - SYSTEMIC CANDIDA [None]
